FAERS Safety Report 4923541-7 (Version None)
Quarter: 2006Q1

REPORT INFORMATION
  Report Type: 
  Country: None (occurrence: None)
  Receive Date: 20060201
  Receipt Date: 20060210
  Transmission Date: 20060701
  Serious: Yes (Other)
  Sender: FDA-Public Use
  Company Number: 2006021743

PATIENT
  Age: 50 Year
  Sex: Male
  Weight: 72.5755 kg

DRUGS (1)
  1. GEODON [Suspect]
     Indication: BRAIN DAMAGE

REACTIONS (2)
  - DRY MOUTH [None]
  - TONGUE DISORDER [None]
